FAERS Safety Report 9919971 (Version 2)
Quarter: 2015Q4

REPORT INFORMATION
  Report Type: Report from Study
  Country: CA (occurrence: CA)
  Receive Date: 20140224
  Receipt Date: 20151010
  Transmission Date: 20160305
  Serious: No
  Sender: FDA-Public Use
  Company Number: PHHY2014CA021439

PATIENT
  Sex: Female

DRUGS (1)
  1. GILENYA [Suspect]
     Active Substance: FINGOLIMOD HYDROCHLORIDE
     Indication: RELAPSING-REMITTING MULTIPLE SCLEROSIS
     Dosage: 0.5 MG, QD
     Route: 048
     Dates: start: 20130620, end: 20140526

REACTIONS (2)
  - Multiple sclerosis relapse [Unknown]
  - Expanded disability status scale score increased [Unknown]

NARRATIVE: CASE EVENT DATE: 2014
